FAERS Safety Report 19874005 (Version 4)
Quarter: 2021Q4

REPORT INFORMATION
  Report Type: Report from Study
  Country: US (occurrence: US)
  Receive Date: 20210922
  Receipt Date: 20211215
  Transmission Date: 20220303
  Serious: Yes (Hospitalization, Disabling, Other)
  Sender: FDA-Public Use
  Company Number: US-SA-SAC20210305001390

PATIENT
  Age: 18 Year
  Sex: Female

DRUGS (3)
  1. ALGLUCOSIDASE ALFA [Suspect]
     Active Substance: ALGLUCOSIDASE ALFA
     Indication: Glycogen storage disease type II
     Dosage: 2150 MG, QW
     Route: 041
     Dates: start: 20141002
  2. TYLENOL [Concomitant]
     Active Substance: ACETAMINOPHEN
  3. BENADRYL [Concomitant]
     Active Substance: DIPHENHYDRAMINE HYDROCHLORIDE

REACTIONS (8)
  - Pneumonia [Recovering/Resolving]
  - Osteomyelitis [Unknown]
  - Back pain [Unknown]
  - Wheelchair user [Not Recovered/Not Resolved]
  - Unevaluable event [Unknown]
  - Pyrexia [Unknown]
  - Product use issue [Unknown]
  - Cardiac operation [Recovering/Resolving]

NARRATIVE: CASE EVENT DATE: 20210304
